FAERS Safety Report 10217828 (Version 3)
Quarter: 2014Q2

REPORT INFORMATION
  Report Type: Report from Study
  Country: CA (occurrence: CA)
  Receive Date: 20140604
  Receipt Date: 20140630
  Transmission Date: 20141212
  Serious: Yes (Hospitalization)
  Sender: FDA-Public Use
  Company Number: CA-BRISTOL-MYERS SQUIBB COMPANY-20856407

PATIENT
  Age: 76 Year
  Sex: Male

DRUGS (4)
  1. IPILIMUMAB [Suspect]
     Indication: METASTATIC MALIGNANT MELANOMA
     Route: 042
     Dates: start: 20140502, end: 20140502
  2. ASPIRIN [Suspect]
     Dates: end: 20140507
  3. PANTOLOC [Concomitant]
  4. FERROUS GLUCONATE [Concomitant]

REACTIONS (1)
  - Colitis [Recovered/Resolved]
